FAERS Safety Report 4514698-0 (Version None)
Quarter: 2004Q4

REPORT INFORMATION
  Report Type: 
  Country: None (occurrence: None)
  Receive Date: 20041126
  Receipt Date: 20041115
  Transmission Date: 20050328
  Serious: Yes (Hospitalization)
  Sender: FDA-Public Use
  Company Number: 2004GB02569

PATIENT
  Age: 62 Year
  Sex: Female
  Weight: 72.6 kg

DRUGS (9)
  1. ARIMIDEX [Suspect]
     Indication: BREAST CANCER
     Dates: start: 20040824
  2. GEFTINIB CODE NOT BROKEN [Suspect]
     Indication: BREAST CANCER
     Dates: start: 20040824, end: 20041014
  3. CO-CODAMOL [Concomitant]
  4. THYROXINE  ^APS: [Concomitant]
  5. OMEPRAZOLE [Concomitant]
  6. ADCAL-D3 [Concomitant]
  7. ALBUTEROL [Concomitant]
  8. VOLTAREN [Concomitant]
  9. DOMPERIDONE [Concomitant]

REACTIONS (2)
  - DIPLOPIA [None]
  - HEADACHE [None]
